FAERS Safety Report 9338512 (Version 3)
Quarter: 2014Q1

REPORT INFORMATION
  Report Type: Spontaneous
  Country: DE (occurrence: DE)
  Receive Date: 20130610
  Receipt Date: 20140311
  Transmission Date: 20141002
  Serious: Yes (Hospitalization, Other)
  Sender: FDA-Public Use
  Company Number: DE-JNJFOC-20130603591

PATIENT
  Age: 61 Year
  Sex: Female
  Weight: 67 kg

DRUGS (7)
  1. XARELTO [Suspect]
     Indication: EMBOLISM VENOUS
     Route: 048
     Dates: start: 201303
  2. XARELTO [Suspect]
     Indication: PULMONARY EMBOLISM
     Route: 048
     Dates: start: 201303
  3. PANTOZOL [Concomitant]
     Route: 065
  4. SORTIS (ATORVASTATIN) [Concomitant]
     Route: 065
  5. TREVILOR [Concomitant]
     Route: 065
  6. PREDNISON [Concomitant]
     Route: 065
     Dates: start: 20130419
  7. BIKALM [Concomitant]
     Route: 065

REACTIONS (10)
  - Cerebrovascular accident [Not Recovered/Not Resolved]
  - Embolic stroke [Unknown]
  - Ischaemic stroke [Unknown]
  - Embolic stroke [Unknown]
  - Embolic stroke [Unknown]
  - Condition aggravated [Unknown]
  - Aphasia [Unknown]
  - Pneumonitis [Unknown]
  - Aphasia [Unknown]
  - Monoparesis [Unknown]
